FAERS Safety Report 24167919 (Version 1)
Quarter: 2024Q3

REPORT INFORMATION
  Report Type: Spontaneous
  Country: CA (occurrence: CA)
  Receive Date: 20240802
  Receipt Date: 20240802
  Transmission Date: 20241017
  Serious: Yes (Other)
  Sender: PFIZER
  Company Number: CA-PFIZER INC-202400227654

PATIENT

DRUGS (5)
  1. DINOPROSTONE [Suspect]
     Active Substance: DINOPROSTONE
     Indication: Induction of cervix ripening
     Dosage: 10 MG, 1X/DAY
     Route: 064
  2. MINERALS\VITAMINS [Concomitant]
     Active Substance: MINERALS\VITAMINS
     Route: 064
  3. NIFEDIPINE [Concomitant]
     Active Substance: NIFEDIPINE
     Indication: Essential hypertension
     Dosage: 30 MG, 1X/DAY
     Route: 064
  4. VITAMIN D NOS [Concomitant]
     Active Substance: CHOLECALCIFEROL\ERGOCALCIFEROL
     Route: 064
  5. .ALPHA.-TOCOPHEROL [Concomitant]
     Active Substance: .ALPHA.-TOCOPHEROL
     Route: 064

REACTIONS (2)
  - Foetal exposure during delivery [Recovered/Resolved]
  - Foetal heart rate abnormal [Recovered/Resolved]
